FAERS Safety Report 5011159-X (Version None)
Quarter: 2006Q2

REPORT INFORMATION
  Report Type: 
  Country: None (occurrence: None)
  Receive Date: 20060523
  Receipt Date: 20060508
  Transmission Date: 20061013
  Serious: Yes (Hospitalization)
  Sender: FDA-Public Use
  Company Number: 2006PL000009

PATIENT
  Age: 63 Year
  Sex: Male

DRUGS (5)
  1. AZATHIOPRINE [Suspect]
     Indication: MICROSCOPIC POLYANGIITIS
     Dates: start: 20040301, end: 20040301
  2. AZATHIOPRINE [Suspect]
     Indication: MICROSCOPIC POLYANGIITIS
     Dates: end: 20040301
  3. STEROIDS (BEING QUERIED) [Suspect]
     Indication: MICROSCOPIC POLYANGIITIS
     Dates: start: 20040301, end: 20040301
  4. STEROIDS (BEING QUERIED) [Suspect]
     Indication: MICROSCOPIC POLYANGIITIS
     Dates: end: 20040301
  5. CIPROFLOXACIN [Concomitant]

REACTIONS (7)
  - ARTHRITIS [None]
  - DRUG EFFECT DECREASED [None]
  - HISTOPLASMOSIS DISSEMINATED [None]
  - HYPOTENSION [None]
  - LEUKOCYTOCLASTIC VASCULITIS [None]
  - PANNICULITIS LOBULAR [None]
  - PYREXIA [None]
